FAERS Safety Report 9268009 (Version 1)
Quarter: 2013Q2

REPORT INFORMATION
  Report Type: Report from Study
  Country: US (occurrence: US)
  Receive Date: 20130502
  Receipt Date: 20130502
  Transmission Date: 20140414
  Serious: Yes (Other)
  Sender: FDA-Public Use
  Company Number: US-ALEXION-A201201308

PATIENT
  Age: 66 Year
  Sex: Female
  Weight: 71 kg

DRUGS (12)
  1. SOLIRIS [Suspect]
     Indication: PAROXYSMAL NOCTURNAL HAEMOGLOBINURIA
     Dosage: 600 MG, QW
     Route: 042
     Dates: start: 20100727, end: 201008
  2. SOLIRIS [Suspect]
     Dosage: 900 MG, Q2W
     Route: 042
     Dates: start: 201008
  3. WARFARIN SODIUM [Concomitant]
     Dosage: 2 MG, QD
     Route: 048
  4. CALCIUM + VITAMIN D [Concomitant]
     Dosage: 1 TAB BID
     Route: 048
  5. CELEBREX [Concomitant]
     Dosage: 250 MG, QD
     Route: 048
  6. Q10 [Concomitant]
     Dosage: 1 CAPSULE AT BEDTIME
     Route: 048
  7. LIPITOR [Concomitant]
     Dosage: 10 MG, QD AT BEDTIME
     Route: 048
  8. OXYCODONE HCL ER [Concomitant]
     Dosage: 5 MG, BID PRN
     Route: 048
  9. TYLENOL [Concomitant]
     Dosage: 650 MG, PRN
     Route: 048
  10. VAGIFEM [Concomitant]
     Dosage: 20 ?G, QD
     Route: 067
  11. FOSAMAX [Concomitant]
     Dosage: 70 MG
     Route: 048
     Dates: end: 20120709
  12. LORAZEPAM [Concomitant]
     Dosage: 1 MG, TID
     Route: 048
     Dates: end: 20120709

REACTIONS (6)
  - Hip arthroplasty [Unknown]
  - Haemoglobin decreased [Recovering/Resolving]
  - Malaise [Unknown]
  - Urinary tract infection [Unknown]
  - Fatigue [Unknown]
  - Palpitations [Unknown]
